FAERS Safety Report 10662927 (Version 16)
Quarter: 2017Q2

REPORT INFORMATION
  Report Type: Report from Study
  Country: US (occurrence: US)
  Receive Date: 20141218
  Receipt Date: 20170413
  Transmission Date: 20170829
  Serious: Yes (Other)
  Sender: FDA-Public Use
  Company Number: US-SA-2014SA060076

PATIENT
  Age: 52 Year
  Sex: Female

DRUGS (17)
  1. AUBAGIO [Suspect]
     Active Substance: TERIFLUNOMIDE
     Indication: MULTIPLE SCLEROSIS
     Route: 048
     Dates: start: 20140425
  2. AUBAGIO [Suspect]
     Active Substance: TERIFLUNOMIDE
     Indication: MULTIPLE SCLEROSIS
     Route: 048
     Dates: start: 20140425
  3. CELEXA [Concomitant]
     Active Substance: CITALOPRAM HYDROBROMIDE
  4. AMPYRA [Suspect]
     Active Substance: DALFAMPRIDINE
     Route: 065
     Dates: start: 201411, end: 201505
  5. CENTRUM SILVER [Concomitant]
     Active Substance: MINERALS\VITAMINS
     Indication: VITAMIN SUPPLEMENTATION
     Dates: start: 20130120
  6. TOPAMAX [Concomitant]
     Active Substance: TOPIRAMATE
     Indication: MIGRAINE
  7. AUBAGIO [Suspect]
     Active Substance: TERIFLUNOMIDE
     Indication: MULTIPLE SCLEROSIS
     Route: 048
     Dates: start: 20140425
  8. CELEXA [Concomitant]
     Active Substance: CITALOPRAM HYDROBROMIDE
     Dosage: 10 MG
  9. MINERALS NOS/VITAMINS NOS [Concomitant]
  10. IRON [Concomitant]
     Active Substance: IRON
     Indication: ASTHENIA
     Dosage: 27 MG
     Dates: start: 20120107
  11. TUMS [Concomitant]
     Active Substance: CALCIUM CARBONATE
  12. METAMUCIL [Concomitant]
     Active Substance: PLANTAGO SEED
     Dates: start: 20140419
  13. AUBAGIO [Suspect]
     Active Substance: TERIFLUNOMIDE
     Indication: MULTIPLE SCLEROSIS
     Route: 048
     Dates: start: 20140425
  14. DETROL [Concomitant]
     Active Substance: TOLTERODINE TARTRATE
     Indication: BLADDER DISORDER
     Dosage: STRENGTH: 4 MG
     Dates: start: 20020217
  15. DIVALPROEX SODIUM. [Concomitant]
     Active Substance: DIVALPROEX SODIUM
     Indication: MIGRAINE
     Dosage: STRENGTH:250 MG
     Dates: start: 20131009
  16. FISH OIL [Concomitant]
     Active Substance: FISH OIL
     Dosage: 1000MG, USED FOR HEALTHY HEART AND JOINTS
     Dates: start: 20060218
  17. MELATONIN [Concomitant]
     Active Substance: MELATONIN
     Indication: SLEEP DISORDER
     Dosage: 5 MG
     Dates: start: 20020220

REACTIONS (28)
  - Pelvic discomfort [Not Recovered/Not Resolved]
  - Flatulence [Unknown]
  - Memory impairment [Unknown]
  - Fatigue [Not Recovered/Not Resolved]
  - Multiple sclerosis relapse [Unknown]
  - Laboratory test abnormal [Unknown]
  - Myalgia [Not Recovered/Not Resolved]
  - Dyspepsia [Unknown]
  - Eructation [Not Recovered/Not Resolved]
  - Ulcer [Unknown]
  - Back pain [Not Recovered/Not Resolved]
  - Muscle spasticity [Not Recovered/Not Resolved]
  - Weight decreased [Not Recovered/Not Resolved]
  - Contusion [Unknown]
  - Limb discomfort [Unknown]
  - Depression [Unknown]
  - Ovarian cyst [Not Recovered/Not Resolved]
  - Decreased appetite [Not Recovered/Not Resolved]
  - Condition aggravated [Not Recovered/Not Resolved]
  - Fall [Unknown]
  - Intervertebral disc degeneration [Not Recovered/Not Resolved]
  - Ovarian disorder [Unknown]
  - Limb discomfort [Not Recovered/Not Resolved]
  - Abdominal pain lower [Not Recovered/Not Resolved]
  - Disturbance in attention [Unknown]
  - Thinking abnormal [Unknown]
  - Pain in extremity [Not Recovered/Not Resolved]
  - Alopecia [Recovered/Resolved]

NARRATIVE: CASE EVENT DATE: 2014
